FAERS Safety Report 4864827-4 (Version None)
Quarter: 2005Q4

REPORT INFORMATION
  Report Type: 
  Country: None (occurrence: None)
  Receive Date: 20051201
  Receipt Date: 20050707
  Transmission Date: 20060501
  Serious: No
  Sender: FDA-Public Use
  Company Number: 2005PV000286

PATIENT
  Age: 59 Year
  Sex: Male
  Weight: 127.0072 kg

DRUGS (6)
  1. BYETTA [Suspect]
     Indication: DIABETES MELLITUS NON-INSULIN-DEPENDENT
     Dosage: 5 MG; BID SC
     Route: 058
     Dates: start: 20050626, end: 20050705
  2. BYETTA [Suspect]
     Indication: DIABETES MELLITUS NON-INSULIN-DEPENDENT
     Dosage: 5 MG; BID SC
     Route: 058
     Dates: start: 20050710
  3. KLONOPIN [Concomitant]
  4. PAXIL [Concomitant]
  5. METHADONE [Concomitant]
  6. INSULIN [Concomitant]

REACTIONS (2)
  - ANXIETY [None]
  - DRUG INTERACTION INHIBITION [None]
